FAERS Safety Report 5113665-6 (Version None)
Quarter: 2006Q3

REPORT INFORMATION
  Report Type: 
  Country: None (occurrence: None)
  Receive Date: 20060925
  Receipt Date: 20051202
  Transmission Date: 20061208
  Serious: Yes (Hospitalization, Other)
  Sender: FDA-Public Use
  Company Number: JP-BRISTOL-MYERS SQUIBB COMPANY-13201827

PATIENT
  Age: 58 Year
  Sex: Female
  Weight: 45 kg

DRUGS (7)
  1. ERBITUX [Suspect]
     Indication: RECTAL CANCER
     Route: 042
     Dates: start: 20051122, end: 20060320
  2. CPT-11 [Suspect]
     Indication: RECTAL CANCER
     Dates: start: 20051122, end: 20060302
  3. PENTASA [Concomitant]
     Indication: ENTEROCOLITIS
     Route: 048
  4. MAGNESIUM OXIDE [Concomitant]
     Indication: CONSTIPATION
     Route: 048
  5. LOXONIN [Concomitant]
     Indication: CANCER PAIN
     Route: 048
  6. ZOLPIDEM TARTRATE [Concomitant]
     Indication: INSOMNIA
     Route: 048
  7. AMOBAN [Concomitant]
     Indication: INSOMNIA
     Route: 048

REACTIONS (2)
  - ABDOMINAL PAIN [None]
  - OVARIAN CYST RUPTURED [None]
